FAERS Safety Report 24412631 (Version 2)
Quarter: 2024Q4

REPORT INFORMATION
  Report Type: Spontaneous
  Country: FR (occurrence: FR)
  Receive Date: 20241008
  Receipt Date: 20241011
  Transmission Date: 20250115
  Serious: Yes (Hospitalization, Other)
  Sender: BAXTER
  Company Number: FR-BAXTER-2024BAX025263

PATIENT
  Age: 41 Year
  Sex: Female

DRUGS (22)
  1. AMINO ACIDS, SOURCE UNSPECIFIED [Suspect]
     Active Substance: AMINO ACIDS, SOURCE UNSPECIFIED
     Dosage: (DURATION: 1 DAY) 680 ML AT AN UNSPECIFIED FREQUENCY
     Route: 065
     Dates: start: 20240921, end: 20240921
  2. AMINO ACIDS, SOURCE UNSPECIFIED [Suspect]
     Active Substance: AMINO ACIDS, SOURCE UNSPECIFIED
     Dosage: 680 ML AT AN UNSPECIFIED FREQUENCY
     Route: 065
     Dates: start: 20240922
  3. WATER [Suspect]
     Active Substance: WATER
     Dosage: (DURATION: 1 DAY) 1830 ML AT AN UNSPECIFIED FREQUENCY
     Route: 065
     Dates: start: 20240921, end: 20240921
  4. WATER [Suspect]
     Active Substance: WATER
     Dosage: 1830 ML AT AN UNSPECIFIED FREQUENCY
     Route: 065
     Dates: start: 20240922
  5. CERNEVIT [Suspect]
     Active Substance: VITAMINS
     Dosage: (DURATION: 1 DAY) 5 ML AT AN UNSPECIFIED FREQUENCY
     Route: 065
     Dates: start: 20240921, end: 20240921
  6. CERNEVIT [Suspect]
     Active Substance: VITAMINS
     Dosage: 5 ML AT AN UNSPECIFIED FREQUENCY
     Route: 065
     Dates: start: 20240922
  7. DEXTROSE [Suspect]
     Active Substance: DEXTROSE MONOHYDRATE
     Dosage: (DURATION: 1 DAY) 418 ML AT AN UNSPECIFIED FREQUENCY
     Route: 065
     Dates: start: 20240921, end: 20240921
  8. DEXTROSE [Suspect]
     Active Substance: DEXTROSE MONOHYDRATE
     Dosage: 418 ML AT AN UNSPECIFIED FREQUENCY
     Route: 065
     Dates: start: 20240922
  9. MAGNESIUM SULFATE [Suspect]
     Active Substance: MAGNESIUM SULFATE
     Dosage: (BAXTER GROSOTTO) DURATION: 1 DAY, 3.8 ML AT AN UNSPECIFIED FREQUENCY
     Route: 065
     Dates: start: 20240921, end: 20240921
  10. MAGNESIUM SULFATE [Suspect]
     Active Substance: MAGNESIUM SULFATE
     Dosage: (BAXTER GROSOTTO) 3.8 ML AT AN UNSPECIFIED FREQUENCY
     Route: 065
     Dates: start: 20240922
  11. POTASSIUM CHLORIDE [Suspect]
     Active Substance: POTASSIUM CHLORIDE
     Dosage: (BAXTER GROSOTTO) DURATION: 1 DAY, 97 ML AT AN UNSPECIFIED FREQUENCY
     Route: 065
     Dates: start: 20240921, end: 20240921
  12. POTASSIUM CHLORIDE [Suspect]
     Active Substance: POTASSIUM CHLORIDE
     Dosage: (BAXTER GROSOTTO) 97 ML AT AN UNSPECIFIED FREQUENCY
     Route: 065
     Dates: start: 20240922
  13. SODIUM CHLORIDE [Suspect]
     Active Substance: SODIUM CHLORIDE
     Dosage: (BAXTER GROSOTTO) DURATION: 1 DAY, 98 ML AT AN UNSPECIFIED FREQUENCY
     Route: 065
     Dates: start: 20240921, end: 20240921
  14. SODIUM CHLORIDE [Suspect]
     Active Substance: SODIUM CHLORIDE
     Dosage: (BAXTER GROSOTTO) 98 ML AT AN UNSPECIFIED FREQUENCY
     Route: 065
     Dates: start: 20240922
  15. CALCIUM GLUCONATE [Suspect]
     Active Substance: CALCIUM GLUCONATE
     Dosage: (BAXTER GROSOTTO) DURATION: 1 DAY, 17 ML AT AN UNSPECIFIED FREQUENCY
     Route: 065
     Dates: start: 20240921, end: 20240921
  16. CALCIUM GLUCONATE [Suspect]
     Active Substance: CALCIUM GLUCONATE
     Dosage: (BAXTER GROSOTTO) 17 ML AT AN UNSPECIFIED FREQUENCY
     Route: 065
     Dates: start: 20240922
  17. PHOCYTAN [Suspect]
     Active Substance: .ALPHA.-GLUCOSE-1-PHOSPHATE DISODIUM TETRAHYDRATE
     Dosage: (AGUETTANT) DURATION: 1 DAY, 58 ML AT AN UNSPECIFIED FREQUENCY
     Route: 065
     Dates: start: 20240921, end: 20240921
  18. PHOCYTAN [Suspect]
     Active Substance: .ALPHA.-GLUCOSE-1-PHOSPHATE DISODIUM TETRAHYDRATE
     Dosage: (AGUETTANT) 58 ML AT AN UNSPECIFIED FREQUENCY
     Route: 065
     Dates: start: 20240922
  19. IRON\MINERALS\POTASSIUM IOD\SODIUM FLUORIDE\SODIUM MOLYBDATE\SODIUM SE [Suspect]
     Active Substance: IRON\MINERALS\POTASSIUM IOD\SODIUM FLUORIDE\SODIUM MOLYBDATE\SODIUM SELENITE\ZINC
     Dosage: (AGUETTANT) DURATION: 1 DAY, 10 ML AT AN UNSPECIFIED FREQUENCY
     Route: 065
     Dates: start: 20240921, end: 20240921
  20. IRON\MINERALS\POTASSIUM IOD\SODIUM FLUORIDE\SODIUM MOLYBDATE\SODIUM SE [Suspect]
     Active Substance: IRON\MINERALS\POTASSIUM IOD\SODIUM FLUORIDE\SODIUM MOLYBDATE\SODIUM SELENITE\ZINC
     Dosage: (AGUETTANT) 10 ML AT AN UNSPECIFIED FREQUENCY
     Route: 065
     Dates: start: 20240922
  21. SMOFLIPID [Suspect]
     Active Substance: FISH OIL\MEDIUM-CHAIN TRIGLYCERIDES\OLIVE OIL\SOYBEAN OIL
     Dosage: (FRESENIUS) DURATION: 1 DAY, 290 ML AT AN UNSPECIFIED FREQUENCY
     Route: 065
     Dates: start: 20240921, end: 20240921
  22. SMOFLIPID [Suspect]
     Active Substance: FISH OIL\MEDIUM-CHAIN TRIGLYCERIDES\OLIVE OIL\SOYBEAN OIL
     Dosage: (FRESENIUS) 290 ML AT AN UNSPECIFIED FREQUENCY
     Route: 065
     Dates: start: 20240922

REACTIONS (2)
  - Angioedema [Recovered/Resolved]
  - Angioedema [Unknown]

NARRATIVE: CASE EVENT DATE: 20240921
